FAERS Safety Report 12950906 (Version 1)
Quarter: 2016Q4

REPORT INFORMATION
  Report Type: Spontaneous
  Country: US (occurrence: US)
  Receive Date: 20161117
  Receipt Date: 20161117
  Transmission Date: 20170207
  Serious: Yes (Other)
  Sender: FDA-Public Use
  Company Number: US-GLAXOSMITHKLINE-US2016169867

PATIENT
  Age: 36 Year
  Sex: Male

DRUGS (1)
  1. EXCEDRIN MIGRAINE [Suspect]
     Active Substance: ACETAMINOPHEN\ASPIRIN\CAFFEINE
     Indication: MIGRAINE
     Dosage: 3 DF, TID
     Dates: start: 2008

REACTIONS (8)
  - Hepatic failure [Unknown]
  - Blood pressure abnormal [Unknown]
  - Inappropriate schedule of drug administration [Unknown]
  - Renal disorder [Unknown]
  - Intentional product misuse [Unknown]
  - Therapeutic response unexpected [Unknown]
  - Myocardial infarction [Unknown]
  - Intentional overdose [Unknown]
